FAERS Safety Report 25832243 (Version 1)
Quarter: 2025Q3

REPORT INFORMATION
  Report Type: Spontaneous
  Country: US (occurrence: None)
  Receive Date: 20250922
  Receipt Date: 20250922
  Transmission Date: 20251021
  Serious: Yes (Hospitalization)
  Sender: FDA-CTU
  Company Number: None

PATIENT
  Age: 73 Year
  Sex: Female

DRUGS (1)
  1. TYMLOS [Suspect]
     Active Substance: ABALOPARATIDE
     Indication: Osteoporosis
     Dosage: FREQUENCY : DAILY;?
     Route: 058
     Dates: start: 20240701

REACTIONS (6)
  - Wound sepsis [None]
  - Septic shock [None]
  - Clostridium difficile infection [None]
  - Contusion [None]
  - Haematoma [None]
  - Therapy interrupted [None]

NARRATIVE: CASE EVENT DATE: 20250822
